FAERS Safety Report 10988905 (Version 2)
Quarter: 2015Q2

REPORT INFORMATION
  Report Type: Spontaneous
  Country: US (occurrence: US)
  Receive Date: 20150405
  Receipt Date: 20150525
  Transmission Date: 20150821
  Serious: No
  Sender: FDA-Public Use
  Company Number: US-JNJFOC-20140906372

PATIENT
  Sex: Female

DRUGS (11)
  1. REMICADE [Suspect]
     Active Substance: INFLIXIMAB
     Indication: RHEUMATOID ARTHRITIS
     Dosage: 1ST WEEK OF AUG-2014
     Route: 042
     Dates: start: 201408
  2. ARTANE [Concomitant]
     Active Substance: TRIHEXYPHENIDYL HYDROCHLORIDE
     Route: 065
  3. DIOVAN [Concomitant]
     Active Substance: VALSARTAN
     Dosage: 160/25 (UNSPECIFIED UNITS)
     Route: 065
  4. FOLIC ACID. [Concomitant]
     Active Substance: FOLIC ACID
     Route: 065
  5. REMICADE [Suspect]
     Active Substance: INFLIXIMAB
     Indication: RHEUMATOID ARTHRITIS
     Route: 042
  6. CLARITIN [Concomitant]
     Active Substance: LORATADINE
     Route: 065
  7. DILTIAZEM CR [Concomitant]
     Route: 065
  8. METHOTREXATE [Concomitant]
     Active Substance: METHOTREXATE
     Route: 065
  9. MOBIC [Concomitant]
     Active Substance: MELOXICAM
     Dosage: 7.5 (UNSPECIFIED UNITS)
     Route: 065
  10. METFORMIN [Concomitant]
     Active Substance: METFORMIN HYDROCHLORIDE
     Route: 065
  11. HALDOL [Concomitant]
     Active Substance: HALOPERIDOL
     Route: 065

REACTIONS (1)
  - Rheumatoid arthritis [Recovering/Resolving]
